FAERS Safety Report 4615461-2 (Version None)
Quarter: 2005Q1

REPORT INFORMATION
  Report Type: 
  Country: None (occurrence: None)
  Receive Date: 20050317
  Receipt Date: 20050304
  Transmission Date: 20050727
  Serious: Yes (Hospitalization)
  Sender: FDA-Public Use
  Company Number: 2005041540

PATIENT
  Age: 63 Year
  Sex: Female

DRUGS (1)
  1. ZELDOX (CAPSULES) (ZIPRASIDONE) [Suspect]
     Indication: SCHIZOPHRENIA, PARANOID TYPE
     Dosage: 120 MG, ORAL
     Route: 048
     Dates: start: 20040903, end: 20041006

REACTIONS (2)
  - EXANTHEM [None]
  - PRURITUS [None]
